FAERS Safety Report 5482524-1 (Version None)
Quarter: 2007Q4

REPORT INFORMATION
  Report Type: 
  Country: None (occurrence: None)
  Receive Date: 20071011
  Receipt Date: 20070622
  Transmission Date: 20080405
  Serious: No
  Sender: FDA-Public Use
  Company Number: A0659686A

PATIENT
  Age: 45 Year
  Sex: Female

DRUGS (6)
  1. TYKERB [Suspect]
     Indication: BREAST CANCER
     Dosage: 250MG EIGHT TIMES PER DAY
     Route: 048
     Dates: start: 20070617
  2. XELODA [Concomitant]
  3. VITAMIN E [Concomitant]
  4. FLAX SEED [Concomitant]
  5. B6 [Concomitant]
  6. ENZYMES [Concomitant]

REACTIONS (3)
  - DIARRHOEA [None]
  - RASH [None]
  - RASH PAPULAR [None]
